FAERS Safety Report 16971912 (Version 1)
Quarter: 2019Q4

REPORT INFORMATION
  Report Type: Spontaneous
  Country: CA (occurrence: CA)
  Receive Date: 20191029
  Receipt Date: 20191029
  Transmission Date: 20200122
  Serious: Yes (Other)
  Sender: FDA-Public Use
  Company Number: CA-PFIZER INC-2019462204

PATIENT
  Age: 52 Year
  Sex: Female
  Weight: 29.25 kg

DRUGS (6)
  1. CYMBALTA [Concomitant]
     Active Substance: DULOXETINE HYDROCHLORIDE
     Dosage: UNK
  2. ZINCUM [ZINC] [Concomitant]
     Dosage: UNK
  3. MIRAPEX [Suspect]
     Active Substance: PRAMIPEXOLE DIHYDROCHLORIDE
     Indication: RESTLESS LEGS SYNDROME
     Dosage: 0.125 MG, 1X/DAY
     Route: 065
  4. GRANITERO [Concomitant]
     Dosage: UNK
  5. SPONGIA HEMOSTATICA [Concomitant]
     Dosage: UNK
  6. CHAMPIX [Suspect]
     Active Substance: VARENICLINE TARTRATE
     Indication: SMOKING CESSATION THERAPY
     Dosage: 1 MG, 2X/DAY
     Route: 065

REACTIONS (4)
  - Alcohol use [Unknown]
  - Arthralgia [Unknown]
  - Wrist fracture [Unknown]
  - Amnesia [Unknown]
